FAERS Safety Report 9280319 (Version 3)
Quarter: 2013Q3

REPORT INFORMATION
  Report Type: Report from Study
  Country: US (occurrence: US)
  Receive Date: 20130509
  Receipt Date: 20130923
  Transmission Date: 20140515
  Serious: Yes (Death)
  Sender: FDA-Public Use
  Company Number: US-ELI_LILLY_AND_COMPANY-US201202005870

PATIENT
  Age: 52 Year
  Sex: Male

DRUGS (3)
  1. TERIPARATIDE [Suspect]
     Indication: OSTEOPOROSIS
     Dosage: UNK, QD
  2. TERIPARATIDE [Suspect]
     Dosage: UNK, QD
  3. TERIPARATIDE [Suspect]
     Dosage: UNK, QD

REACTIONS (6)
  - Sepsis [Fatal]
  - Pneumonitis [Fatal]
  - Dyskinesia [Unknown]
  - Fall [Recovered/Resolved]
  - Fall [Recovered/Resolved]
  - Drug dose omission [Recovered/Resolved]
